FAERS Safety Report 18334427 (Version 1)
Quarter: 2020Q4

REPORT INFORMATION
  Report Type: Spontaneous
  Country: US (occurrence: US)
  Receive Date: 20201001
  Receipt Date: 20201001
  Transmission Date: 20210113
  Serious: No
  Sender: FDA-Public Use
  Company Number: US-MYLANLABS-2020M1075431

PATIENT
  Sex: Female
  Weight: 90 kg

DRUGS (1)
  1. FENTANYL TRANSDERMAL SYSTEM [Suspect]
     Active Substance: FENTANYL
     Indication: BREAST CANCER METASTATIC
     Dosage: ONE PATCH EVERY 3 DAYS
     Route: 062

REACTIONS (8)
  - Fatigue [Unknown]
  - Product quality issue [Recovered/Resolved]
  - Lethargy [Unknown]
  - Therapeutic product effect increased [Recovered/Resolved]
  - Heat stroke [Unknown]
  - Dehydration [Unknown]
  - Product use in unapproved therapeutic environment [Recovered/Resolved]
  - Wrong technique in product usage process [Unknown]
